FAERS Safety Report 21843506 (Version 1)
Quarter: 2023Q1

REPORT INFORMATION
  Report Type: Spontaneous
  Country: US (occurrence: None)
  Receive Date: 20230109
  Receipt Date: 20230109
  Transmission Date: 20230418
  Serious: No
  Sender: FDA-Public Use
  Company Number: None

PATIENT
  Sex: 0

DRUGS (2)
  1. SULFACLEANSE 8/4 [Suspect]
     Active Substance: SULFACETAMIDE SODIUM\SULFUR
  2. ACZONE [Suspect]
     Active Substance: DAPSONE

REACTIONS (1)
  - Treatment failure [None]
